FAERS Safety Report 12678113 (Version 2)
Quarter: 2016Q3

REPORT INFORMATION
  Report Type: Spontaneous
  Country: CH (occurrence: CH)
  Receive Date: 20160823
  Receipt Date: 20160831
  Transmission Date: 20161109
  Serious: Yes (Other)
  Sender: FDA-Public Use
  Company Number: CH-BEH-2016072913

PATIENT
  Sex: Female

DRUGS (8)
  1. AZATHIOPRINE. [Concomitant]
     Active Substance: AZATHIOPRINE
     Dosage: 50 MG, BID
     Route: 065
  2. CHININ [Concomitant]
     Active Substance: QUININE HYDROCHLORIDE
     Dosage: 250 MG, 1-2/DAY
     Route: 065
  3. ALVESCO [Concomitant]
     Active Substance: CICLESONIDE
     Dosage: UNK, BID
     Route: 045
  4. PRIVIGEN [Suspect]
     Active Substance: HUMAN IMMUNOGLOBULIN G
     Dosage: 22.5 MG, OD
     Route: 042
     Dates: start: 20160707
  5. PANTOPRAZOLE [Concomitant]
     Active Substance: PANTOPRAZOLE SODIUM
     Dosage: 40 MG, OD
     Route: 065
  6. SIFROL [Concomitant]
     Active Substance: PRAMIPEXOLE
     Dosage: 0.125 MG, OD
     Route: 065
  7. PRIVIGEN [Suspect]
     Active Substance: HUMAN IMMUNOGLOBULIN G
     Indication: CHRONIC INFLAMMATORY DEMYELINATING POLYRADICULONEUROPATHY
     Dosage: 2.5 G, UNK
     Route: 065
  8. CALCIMAGON                         /00751501/ [Concomitant]
     Active Substance: CALCIUM CARBONATE
     Dosage: UNK, OD
     Route: 065

REACTIONS (1)
  - Neutropenia [Recovered/Resolved]
